FAERS Safety Report 8011748-4 (Version None)
Quarter: 2011Q4

REPORT INFORMATION
  Report Type: 
  Country: None (occurrence: None)
  Receive Date: 20111228
  Receipt Date: 20111213
  Transmission Date: 20120403
  Serious: Yes (Other)
  Sender: FDA-Public Use
  Company Number: JP-TEVA-315005USA

PATIENT
  Sex: Female

DRUGS (7)
  1. FLUMEHOLON [Concomitant]
     Dates: start: 20100823, end: 20110307
  2. BETAMETHASONE [Concomitant]
     Dates: start: 20110223, end: 20110223
  3. METALITE [Concomitant]
     Route: 048
     Dates: start: 20010201, end: 20110922
  4. CRAVIT OPHTHALMIC SOLUTION [Concomitant]
     Dates: start: 20100823, end: 20110307
  5. LOXONIN [Concomitant]
     Dosage: 60 MILLIGRAM;
     Route: 048
     Dates: start: 20110223, end: 20110226
  6. FLOMOX [Concomitant]
     Dosage: 300 MILLIGRAM;
     Route: 048
     Dates: start: 20110223, end: 20110226
  7. ZINC ACETATE 25 MG + 50 MG CAPSULES [Suspect]
     Indication: HEPATO-LENTICULAR DEGENERATION
     Dosage: 150 MILLIGRAM;
     Route: 048
     Dates: start: 20100722

REACTIONS (2)
  - AMNESIA [None]
  - LOSS OF CONSCIOUSNESS [None]
